FAERS Safety Report 15864243 (Version 9)
Quarter: 2020Q2

REPORT INFORMATION
  Report Type: Report from Study
  Country: KR (occurrence: KR)
  Receive Date: 20190124
  Receipt Date: 20200526
  Transmission Date: 20200713
  Serious: Yes (Hospitalization)
  Sender: FDA-Public Use
  Company Number: KR-AMGEN-KORCT2019010341

PATIENT
  Age: 63 Year
  Sex: Male
  Weight: 75.1 kg

DRUGS (23)
  1. DEXAMETHASONE. [Concomitant]
     Active Substance: DEXAMETHASONE
     Indication: PLASMA CELL MYELOMA
     Dosage: 20-40 MILLIGRAM
     Dates: start: 20180109
  2. PAMIDRONATE [Concomitant]
     Active Substance: PAMIDRONATE DISODIUM
     Dosage: 90 MILLIGRAM
     Dates: start: 20140213
  3. ACETAMINOPHEN. [Concomitant]
     Active Substance: ACETAMINOPHEN
     Dosage: 650 MILLIGRAM
     Route: 048
     Dates: start: 20171219
  4. SMECTA [Concomitant]
     Active Substance: MONTMORILLONITE
     Dosage: 20 MILLILITER
     Dates: start: 20180611, end: 20190109
  5. CELECOXIB. [Concomitant]
     Active Substance: CELECOXIB
     Dosage: 200 MILLIGRAM
     Dates: start: 20160602
  6. CARFILZOMIB [Suspect]
     Active Substance: CARFILZOMIB
     Indication: PLASMA CELL MYELOMA
     Dosage: 106 MILLIGRAM, PER CHEMO REGIM
     Route: 042
     Dates: start: 20171219
  7. CARFILZOMIB [Suspect]
     Active Substance: CARFILZOMIB
     Dosage: 106 MILLIGRAM, PER CHEMO REGIM
     Route: 042
     Dates: start: 20190131
  8. OMACOR [Concomitant]
     Active Substance: OMEGA-3-ACID ETHYL ESTERS
     Indication: HYPERLIPIDAEMIA
     Dosage: 1 UNK, BID
     Route: 048
     Dates: start: 20180807, end: 20190131
  9. LIPITOR [Concomitant]
     Active Substance: ATORVASTATIN CALCIUM
     Indication: HYPERLIPIDAEMIA
     Dosage: 10 MILLIGRAM, QD
     Route: 048
     Dates: start: 20180807
  10. CONCOR [Concomitant]
     Active Substance: BISOPROLOL FUMARATE
     Indication: AORTIC STENOSIS
     Dosage: 0.5 UNK, QD
     Route: 048
     Dates: start: 20181226, end: 20190119
  11. DULOXETINE. [Concomitant]
     Active Substance: DULOXETINE
     Dosage: 30 MILLIGRAM
     Dates: start: 20160923
  12. CARFILZOMIB [Suspect]
     Active Substance: CARFILZOMIB
     Dosage: UNK UNK, PER CHEMO REGIM
     Route: 042
  13. TRIMEBUTINE [Concomitant]
     Active Substance: TRIMEBUTINE
     Dosage: 100 MILLIGRAM
     Dates: start: 20180904, end: 20190123
  14. DARATUMUMAB [Suspect]
     Active Substance: DARATUMUMAB
     Dosage: UNK UNK, PER CHEMO REGIM
     Route: 042
     Dates: start: 20190131
  15. DICAMAX-D [Concomitant]
     Active Substance: CALCIUM CARBONATE\CHOLECALCIFEROL
     Dosage: 250 MILLIGRAM
     Dates: start: 20141007
  16. REFRESH PLUS [Concomitant]
     Active Substance: CARBOXYMETHYLCELLULOSE SODIUM
     Dosage: 1 GTT DROPS
     Dates: start: 20160508
  17. ACYCLOVIR. [Concomitant]
     Active Substance: ACYCLOVIR
     Dosage: 200 MILLIGRAM
     Route: 048
     Dates: start: 20171219
  18. MONTELUKAST [Concomitant]
     Active Substance: MONTELUKAST SODIUM
     Dosage: 10 MILLIGRAM
     Route: 048
     Dates: start: 20171219
  19. OMEPRAZOLE. [Concomitant]
     Active Substance: OMEPRAZOLE
     Dosage: 10 MILLIGRAM
     Route: 048
     Dates: start: 20171219
  20. CHLORPHENIRAMINE [CHLORPHENAMINE] [Concomitant]
     Active Substance: CHLORPHENIRAMINE
     Dosage: 4 MILLIGRAM
     Route: 042
     Dates: start: 20171219
  21. GABAPENTIN. [Concomitant]
     Active Substance: GABAPENTIN
     Dosage: 400 MILLIGRAM
     Dates: start: 20161201
  22. DARATUMUMAB [Suspect]
     Active Substance: DARATUMUMAB
     Indication: PLASMA CELL MYELOMA
     Dosage: 1072 MILLIGRAM, PER CHEMO REGIM
     Route: 042
     Dates: start: 20171219
  23. OROSARTAN [Concomitant]
     Indication: HYPERTENSION
     Dosage: 1 UNK, QD
     Route: 048
     Dates: start: 20180710, end: 20190119

REACTIONS (1)
  - Aortic stenosis [Recovered/Resolved]

NARRATIVE: CASE EVENT DATE: 20190108
